FAERS Safety Report 6612464-3 (Version None)
Quarter: 2010Q1

REPORT INFORMATION
  Report Type: 
  Country: None (occurrence: None)
  Receive Date: 20100303
  Receipt Date: 20100223
  Transmission Date: 20100710
  Serious: Yes (Other)
  Sender: FDA-Public Use
  Company Number: US-JNJCH-2010005084

PATIENT
  Age: 53 Year
  Sex: Male
  Weight: 87.1 kg

DRUGS (1)
  1. LISTERINE WHITENING VIBRANT WHITE PRE-BRUSH RINSE [Suspect]
     Indication: DENTAL CARE
     Dosage: DAILY DOSE:15ML-TEXT:15 MILLILITER TWICE PER DAY
     Route: 048

REACTIONS (2)
  - TOOTH FRACTURE [None]
  - TOOTH LOSS [None]
